FAERS Safety Report 5643805-1 (Version None)
Quarter: 2008Q1

REPORT INFORMATION
  Report Type: 
  Country: None (occurrence: None)
  Receive Date: 20080228
  Receipt Date: 20080220
  Transmission Date: 20080703
  Serious: Yes (Other)
  Sender: FDA-Public Use
  Company Number: JP-MERCK-0712USA08937

PATIENT
  Age: 89 Year
  Sex: Female

DRUGS (7)
  1. FOSAMAX [Suspect]
     Indication: OSTEOPOROSIS
     Route: 048
     Dates: start: 20071110, end: 20071125
  2. LOXONIN [Suspect]
     Route: 048
     Dates: start: 20071109
  3. MUCOSTA [Concomitant]
     Route: 048
     Dates: start: 20071109
  4. KETOPROFEN [Concomitant]
     Route: 065
     Dates: start: 20071109
  5. CALCIUM ASPARTATE [Concomitant]
     Route: 048
     Dates: start: 20071110, end: 20071125
  6. ALFAROL [Concomitant]
     Indication: PAIN
     Route: 048
     Dates: start: 20071110, end: 20071125
  7. ARICEPT [Concomitant]
     Route: 048

REACTIONS (1)
  - GASTRIC ULCER HAEMORRHAGE [None]
